FAERS Safety Report 7629132-1 (Version None)
Quarter: 2011Q3

REPORT INFORMATION
  Report Type: 
  Country: None (occurrence: None)
  Receive Date: 20110715
  Receipt Date: 20110707
  Transmission Date: 20111222
  Serious: Yes (Hospitalization)
  Sender: FDA-Public Use
  Company Number: 2010SP018554

PATIENT
  Age: 23 Year
  Sex: Female
  Weight: 86.1834 kg

DRUGS (1)
  1. NUVARING [Suspect]
     Indication: CONTRACEPTION
     Dosage: QM;VAG
     Route: 067
     Dates: start: 20060701, end: 20080430

REACTIONS (8)
  - DRUG HYPERSENSITIVITY [None]
  - BACK PAIN [None]
  - ROAD TRAFFIC ACCIDENT [None]
  - HAND FRACTURE [None]
  - PULMONARY EMBOLISM [None]
  - SUPRAVENTRICULAR TACHYCARDIA [None]
  - SOFT TISSUE INJURY [None]
  - VENTRICULAR EXTRASYSTOLES [None]
